FAERS Safety Report 7928021-2 (Version None)
Quarter: 2011Q4

REPORT INFORMATION
  Report Type: 
  Country: None (occurrence: None)
  Receive Date: 20111118
  Receipt Date: 20111115
  Transmission Date: 20120403
  Serious: Yes (Hospitalization)
  Sender: FDA-Public Use
  Company Number: FR-ABBOTT-11P-056-0855319-00

PATIENT
  Sex: Male

DRUGS (7)
  1. COLCHICINE [Suspect]
     Indication: GOUT
     Route: 048
     Dates: start: 20110808, end: 20110808
  2. ASPIRIN [Concomitant]
     Indication: PRODUCT USED FOR UNKNOWN INDICATION
  3. PLAVIX [Concomitant]
     Indication: PRODUCT USED FOR UNKNOWN INDICATION
  4. PERINDOPRIL ERBUMINE [Suspect]
     Indication: MYOCARDIAL ISCHAEMIA
     Route: 048
     Dates: end: 20110813
  5. COLCHICINE [Suspect]
     Route: 048
     Dates: start: 20110809, end: 20110809
  6. ATORVASTATIN CALCIUM [Suspect]
     Indication: MYOCARDIAL ISCHAEMIA
     Route: 048
     Dates: end: 20110813
  7. COLCHICINE [Suspect]
     Route: 048
     Dates: start: 20110810, end: 20110813

REACTIONS (11)
  - METABOLIC ACIDOSIS [None]
  - CHOLESTASIS [None]
  - RHABDOMYOLYSIS [None]
  - HYPERTENSION [None]
  - CHEST PAIN [None]
  - CYTOLYTIC HEPATITIS [None]
  - ARTHRALGIA [None]
  - ABDOMINAL PAIN LOWER [None]
  - OEDEMA PERIPHERAL [None]
  - GOUT [None]
  - RENAL FAILURE ACUTE [None]
